FAERS Safety Report 22766739 (Version 5)
Quarter: 2023Q4

REPORT INFORMATION
  Report Type: Spontaneous
  Country: US (occurrence: US)
  Receive Date: 20230731
  Receipt Date: 20231120
  Transmission Date: 20240109
  Serious: Yes (Disabling, Other)
  Sender: FDA-Public Use
  Company Number: US-ABBVIE-5346234

PATIENT
  Age: 87 Year
  Sex: Male
  Weight: 70 kg

DRUGS (4)
  1. UBRELVY [Suspect]
     Active Substance: UBROGEPANT
     Indication: Migraine
     Dosage: AS SELDOM AS POSSIBLE?50 MILLIGRAM
     Route: 048
     Dates: start: 202204
  2. UBRELVY [Suspect]
     Active Substance: UBROGEPANT
     Indication: Migraine
     Dosage: 50 MILLIGRAM
     Route: 048
  3. UBRELVY [Suspect]
     Active Substance: UBROGEPANT
     Indication: Migraine
     Route: 048
     Dates: start: 20231108
  4. PROPOFOL [Concomitant]
     Active Substance: PROPOFOL
     Indication: Arrhythmia
     Dosage: 225 MILLIGRAM

REACTIONS (16)
  - Disability [Not Recovered/Not Resolved]
  - Reading disorder [Recovering/Resolving]
  - Drug ineffective [Unknown]
  - Headache [Not Recovered/Not Resolved]
  - Impaired work ability [Recovering/Resolving]
  - Sinus pain [Unknown]
  - Migraine [Not Recovered/Not Resolved]
  - Headache [Not Recovered/Not Resolved]
  - Dizziness [Recovering/Resolving]
  - Nausea [Not Recovered/Not Resolved]
  - Insomnia [Recovering/Resolving]
  - Eye disorder [Not Recovered/Not Resolved]
  - Medication overuse headache [Not Recovered/Not Resolved]
  - Eye pain [Not Recovered/Not Resolved]
  - Unevaluable event [Unknown]
  - Headache [Unknown]

NARRATIVE: CASE EVENT DATE: 20230728
